FAERS Safety Report 6959420-3 (Version None)
Quarter: 2010Q3

REPORT INFORMATION
  Report Type: 
  Country: None (occurrence: None)
  Receive Date: 20100831
  Receipt Date: 20100831
  Transmission Date: 20110219
  Serious: Yes (Hospitalization)
  Sender: FDA-Public Use
  Company Number: None

PATIENT

DRUGS (2)
  1. SAVELLA [Suspect]
     Dates: start: 20100701, end: 20100820
  2. SAVELLA [Suspect]
     Indication: PARKINSON'S DISEASE

REACTIONS (5)
  - MEDICATION ERROR [None]
  - PRODUCT PACKAGING ISSUE [None]
  - TACHYCARDIA [None]
  - UPPER LIMB FRACTURE [None]
  - WRONG DRUG ADMINISTERED [None]
